FAERS Safety Report 22962925 (Version 4)
Quarter: 2024Q2

REPORT INFORMATION
  Report Type: Report from Study
  Country: JP (occurrence: JP)
  Receive Date: 20230920
  Receipt Date: 20240405
  Transmission Date: 20240715
  Serious: Yes (Death)
  Sender: FDA-Public Use
  Company Number: JP-PFIZER INC-PV202300158049

PATIENT
  Age: 10 Month
  Sex: Female
  Weight: 4.655 kg

DRUGS (5)
  1. SIROLIMUS [Suspect]
     Active Substance: SIROLIMUS
     Indication: Lymphangioma
     Dosage: 0.26 MG,1 D
     Route: 048
     Dates: start: 20230207, end: 20230405
  2. SIROLIMUS [Suspect]
     Active Substance: SIROLIMUS
     Dosage: 0.2 MG, 1X/DAY
     Route: 048
     Dates: start: 20230418, end: 20230819
  3. PROPRANOLOL HYDROCHLORIDE [Concomitant]
     Active Substance: PROPRANOLOL HYDROCHLORIDE
     Indication: Lymphangioma
     Dosage: UNK
     Route: 048
     Dates: start: 20221219, end: 20230819
  4. HERBALS [Concomitant]
     Active Substance: HERBALS
     Indication: Lymphangioma
     Dosage: UNK
     Route: 048
     Dates: start: 20221214, end: 20230819
  5. OGIKENCHUTO [ASTRAGALUS SPP. ROOT;CINNAMOMUM CASSIA BARK;GLYCYRRHIZA S [Concomitant]
     Indication: Lymphangioma
     Dosage: UNK
     Route: 048
     Dates: start: 20221214, end: 20230819

REACTIONS (2)
  - Lymphangioma [Fatal]
  - Disease progression [Fatal]

NARRATIVE: CASE EVENT DATE: 20230819
